FAERS Safety Report 5573168-1 (Version None)
Quarter: 2007Q4

REPORT INFORMATION
  Report Type: 
  Country: None (occurrence: None)
  Receive Date: 20071220
  Receipt Date: 20071214
  Transmission Date: 20080405
  Serious: Yes (Hospitalization)
  Sender: FDA-Public Use
  Company Number: 009-C5013-07120862

PATIENT
  Age: 79 Year
  Sex: Female

DRUGS (3)
  1. CC-5013\PLACEBO (LENALIDOMIDE) (CAPSULES) [Suspect]
     Indication: MULTIPLE MYELOMA
     Dosage: 10 MG, DAILY, ORAL
     Route: 048
     Dates: start: 20071201
  2. MELPHALAN (MELPHALAN) [Suspect]
     Indication: MULTIPLE MYELOMA
     Dosage: 10 MG, DAILY, ORAL
     Route: 048
     Dates: start: 20071201
  3. PREDNISONE [Suspect]
     Indication: MULTIPLE MYELOMA
     Dosage: 122 MG, DAILY, ORAL
     Route: 048
     Dates: start: 20071201

REACTIONS (4)
  - BACK PAIN [None]
  - GENERAL PHYSICAL HEALTH DETERIORATION [None]
  - NAUSEA [None]
  - VOMITING [None]
